FAERS Safety Report 5326199-0 (Version None)
Quarter: 2007Q2

REPORT INFORMATION
  Report Type: 
  Country: None (occurrence: None)
  Receive Date: 20070516
  Receipt Date: 20070511
  Transmission Date: 20071010
  Serious: Yes (Other)
  Sender: FDA-Public Use
  Company Number: PHBS2006JP06356

PATIENT
  Age: 57 Year
  Sex: Male

DRUGS (1)
  1. AREDIA [Suspect]
     Indication: MULTIPLE MYELOMA
     Dosage: 45 MG
     Route: 042
     Dates: start: 20000701

REACTIONS (7)
  - ANAESTHESIA [None]
  - BONE DISORDER [None]
  - JAW DISORDER [None]
  - OSTEONECROSIS [None]
  - PLASTIC SURGERY [None]
  - SURGERY [None]
  - TOOTHACHE [None]
